FAERS Safety Report 12677662 (Version 10)
Quarter: 2018Q4

REPORT INFORMATION
  Report Type: Report from Study
  Country: US (occurrence: US)
  Receive Date: 20160823
  Receipt Date: 20181030
  Transmission Date: 20190204
  Serious: Yes (Hospitalization)
  Sender: FDA-Public Use
  Company Number: PHHY2016US113819

PATIENT
  Age: 22 Year
  Sex: Male
  Weight: 145.2 kg

DRUGS (25)
  1. SENNA [Concomitant]
     Active Substance: SENNA LEAF\SENNOSIDES\SENNOSIDES A AND B
     Indication: PRODUCT USED FOR UNKNOWN INDICATION
     Dosage: 2 DF, QHS
     Route: 048
  2. LIORESAL [Concomitant]
     Active Substance: BACLOFEN
     Indication: MUSCLE SPASTICITY
     Dosage: 10 MG, TID
     Route: 065
     Dates: start: 201601
  3. KEPPRA [Concomitant]
     Active Substance: LEVETIRACETAM
     Indication: SEIZURE
     Dosage: 1500 MG, BID
     Route: 048
     Dates: start: 20160907
  4. KEPPRA [Concomitant]
     Active Substance: LEVETIRACETAM
     Indication: MOVEMENT DISORDER
     Dosage: UNK
     Route: 065
     Dates: start: 20160916, end: 20160916
  5. HEPARIN [Concomitant]
     Active Substance: HEPARIN SODIUM
     Indication: PRODUCT USED FOR UNKNOWN INDICATION
     Dosage: 5000 U, TID
     Route: 058
  6. OMEPRAZOLE. [Concomitant]
     Active Substance: OMEPRAZOLE
     Indication: PRODUCT USED FOR UNKNOWN INDICATION
     Dosage: UNK
     Route: 048
  7. AMITRIPTYLINE [Concomitant]
     Active Substance: AMITRIPTYLINE
     Indication: PRODUCT USED FOR UNKNOWN INDICATION
     Dosage: 50 MG, QHS
     Route: 048
  8. COLACE [Concomitant]
     Active Substance: DOCUSATE SODIUM
     Indication: PRODUCT USED FOR UNKNOWN INDICATION
     Dosage: 100 MG, BID
     Route: 048
  9. ELAVIL [Concomitant]
     Active Substance: AMITRIPTYLINE HYDROCHLORIDE
     Indication: INSOMNIA
     Dosage: 50 MG, QHS
     Route: 048
     Dates: start: 201601
  10. DELTASONE [Concomitant]
     Active Substance: PREDNISONE
     Dosage: 30 MG, QD (FOR 3 DAYS)
     Route: 065
  11. DELTASONE [Concomitant]
     Active Substance: PREDNISONE
     Dosage: 20 MG, QD (FOR 3 DAYS)
     Route: 065
  12. DELTASONE [Concomitant]
     Active Substance: PREDNISONE
     Dosage: 10 MG, QD (FOR 3 DAYS)
     Route: 065
  13. IMODIUM [Concomitant]
     Active Substance: LOPERAMIDE HYDROCHLORIDE
     Indication: PRODUCT USED FOR UNKNOWN INDICATION
     Dosage: 4 DF, QD
     Route: 048
  14. VIMPAT [Concomitant]
     Active Substance: LACOSAMIDE
     Indication: PRODUCT USED FOR UNKNOWN INDICATION
     Dosage: 100 MG, BID
     Route: 048
  15. SENOKOT [Concomitant]
     Active Substance: SENNOSIDES
     Indication: PRODUCT USED FOR UNKNOWN INDICATION
     Dosage: 8.6 MG, BIW
     Route: 048
  16. DULCOLAX NOS [Concomitant]
     Active Substance: BISACODYL OR DOCUSATE SODIUM
     Indication: PRODUCT USED FOR UNKNOWN INDICATION
     Dosage: 10 MG, QD (PRN)
     Route: 054
  17. TYLENOL [Concomitant]
     Active Substance: ACETAMINOPHEN
     Indication: PRODUCT USED FOR UNKNOWN INDICATION
     Dosage: 650 MG, Q4H (PRN)
     Route: 048
  18. LAC-HYDRIN [Concomitant]
     Active Substance: AMMONIUM LACTATE
     Indication: HYPERKERATOSIS
     Dosage: 1 APPLICATION TO THE SKIN, BID
     Route: 061
  19. ZOFRAN [Concomitant]
     Active Substance: ONDANSETRON HYDROCHLORIDE
     Indication: PRODUCT USED FOR UNKNOWN INDICATION
     Dosage: 4 MG, Q4H (PRN)
     Route: 042
  20. GILENYA [Suspect]
     Active Substance: FINGOLIMOD HYDROCHLORIDE
     Indication: MULTIPLE SCLEROSIS
     Dosage: 0.5 MG, QD
     Route: 048
     Dates: start: 20160630
  21. VITAMIN D [Concomitant]
     Active Substance: CHOLECALCIFEROL
     Indication: PRODUCT USED FOR UNKNOWN INDICATION
     Dosage: 50000 U, QW
     Route: 048
  22. DELTASONE [Concomitant]
     Active Substance: PREDNISONE
     Indication: PRODUCT USED FOR UNKNOWN INDICATION
     Dosage: 40 MG, QD (FOR 3 DAYS)
     Route: 065
  23. PANTOPRAZOLE [Concomitant]
     Active Substance: PANTOPRAZOLE
     Indication: PRODUCT USED FOR UNKNOWN INDICATION
     Dosage: 1 DF, QD (BEFORE BREAKFAST)
     Route: 048
  24. VITAMIN B12 [Concomitant]
     Active Substance: CYANOCOBALAMIN
     Indication: PRODUCT USED FOR UNKNOWN INDICATION
     Dosage: 500 UG, QD
     Route: 048
  25. VITAMIN D3 [Concomitant]
     Active Substance: CHOLECALCIFEROL
     Indication: VITAMIN D DEFICIENCY
     Dosage: 8000 U, QD
     Route: 048
     Dates: start: 201601

REACTIONS (36)
  - Muscle twitching [Unknown]
  - Drug ineffective [Unknown]
  - Fatigue [Unknown]
  - Musculoskeletal pain [Unknown]
  - Back pain [Unknown]
  - Anal incontinence [Unknown]
  - Confusional state [Unknown]
  - Multiple sclerosis relapse [Unknown]
  - Movement disorder [Unknown]
  - Hypoaesthesia [Unknown]
  - Muscle spasms [Unknown]
  - Fall [Recovering/Resolving]
  - Feeling abnormal [Unknown]
  - Ataxia [Unknown]
  - Tremor [Unknown]
  - Facial asymmetry [Unknown]
  - Nystagmus [Unknown]
  - Postictal state [Unknown]
  - Blood alkaline phosphatase increased [Unknown]
  - Balance disorder [Not Recovered/Not Resolved]
  - Asthenia [Unknown]
  - Muscular weakness [Unknown]
  - Abdominal pain upper [Unknown]
  - Seizure [Recovered/Resolved with Sequelae]
  - Urinary incontinence [Unknown]
  - Vision blurred [Unknown]
  - Sensory loss [Not Recovered/Not Resolved]
  - Blood pressure increased [Unknown]
  - Headache [Unknown]
  - Hypertension [Recovered/Resolved]
  - Photopsia [Unknown]
  - Gait disturbance [Not Recovered/Not Resolved]
  - Abdominal rigidity [Unknown]
  - Malaise [Unknown]
  - Leukocytosis [Unknown]
  - Tachycardia [Recovered/Resolved]

NARRATIVE: CASE EVENT DATE: 20160811
